FAERS Safety Report 21779754 (Version 1)
Quarter: 2022Q4

REPORT INFORMATION
  Report Type: Spontaneous
  Country: DE (occurrence: DE)
  Receive Date: 20221226
  Receipt Date: 20221226
  Transmission Date: 20230112
  Serious: Yes (Other)
  Sender: FDA-Public Use
  Company Number: DE-ROCHE-2522985

PATIENT
  Sex: Female

DRUGS (17)
  1. PREDNISOLONE [Suspect]
     Active Substance: PREDNISOLONE
     Indication: Premedication
     Dosage: UNK
     Dates: start: 20210531
  2. OCREVUS [Suspect]
     Active Substance: OCRELIZUMAB
     Indication: Relapsing-remitting multiple sclerosis
     Dosage: ACTUAL:3RD MAINTENANCE DOSE
     Dates: start: 20210531
  3. OCREVUS [Suspect]
     Active Substance: OCRELIZUMAB
     Dosage: 600 MG
     Dates: start: 20201123
  4. OCREVUS [Suspect]
     Active Substance: OCRELIZUMAB
     Dosage: 600 MG
     Dates: start: 20200518
  5. OCREVUS [Suspect]
     Active Substance: OCRELIZUMAB
     Dosage: 300 MG
     Dates: start: 20191202
  6. OCREVUS [Suspect]
     Active Substance: OCRELIZUMAB
     Dosage: 300 MG
     Dates: start: 20191118
  7. COMIRNATY [Suspect]
     Active Substance: TOZINAMERAN
     Indication: COVID-19 prophylaxis
     Dosage: 3RD VACCINE
     Dates: start: 20211026, end: 20211026
  8. COMIRNATY [Suspect]
     Active Substance: TOZINAMERAN
     Dosage: UNK, SINGLE
     Dates: start: 20210311, end: 20210311
  9. COMIRNATY [Suspect]
     Active Substance: TOZINAMERAN
     Dosage: UNK, SINGLE
     Dates: start: 20210218, end: 20210218
  10. TROSPIUM CHLORIDE [Concomitant]
     Active Substance: TROSPIUM CHLORIDE
     Dosage: 5 MG
  11. LEVOTHYROXINE [Concomitant]
     Active Substance: LEVOTHYROXINE
     Dosage: 125 ?G
  12. DESOGESTREL [Concomitant]
     Active Substance: DESOGESTREL
     Indication: Endometriosis
     Dosage: 75 ?G
  13. MIRABEGRON [Concomitant]
     Active Substance: MIRABEGRON
     Dosage: 50 MG
  14. ERGOCALCIFEROL [Concomitant]
     Active Substance: ERGOCALCIFEROL
     Dosage: 500 IU
  15. COSENTYX [Concomitant]
     Active Substance: SECUKINUMAB
     Dosage: UNK
  16. CORTISONE [Concomitant]
     Active Substance: CORTISONE
     Dosage: 100 MG
  17. FOLIC ACID [Concomitant]
     Active Substance: FOLIC ACID
     Indication: Endometriosis
     Dosage: 5 MG

REACTIONS (18)
  - Type 2 diabetes mellitus [Not Recovered/Not Resolved]
  - Pneumonia [Recovering/Resolving]
  - Cartilage injury [Not Recovered/Not Resolved]
  - SARS-CoV-2 antibody test negative [Not Recovered/Not Resolved]
  - C-reactive protein increased [Unknown]
  - White blood cell count decreased [Unknown]
  - Erythema [Recovered/Resolved]
  - Feeling hot [Recovered/Resolved]
  - Listless [Recovered/Resolved]
  - COVID-19 [Recovered/Resolved]
  - Vasculitis [Recovered/Resolved]
  - Bronchitis [Recovered/Resolved]
  - Palpitations [Recovered/Resolved]
  - Feeling cold [Recovered/Resolved]
  - Visual impairment [Recovered/Resolved]
  - Fatigue [Recovered/Resolved]
  - Headache [Recovered/Resolved]
  - Hypersensitivity [Recovered/Resolved]

NARRATIVE: CASE EVENT DATE: 20191118
